FAERS Safety Report 7725973-0 (Version None)
Quarter: 2011Q3

REPORT INFORMATION
  Report Type: 
  Country: None (occurrence: None)
  Receive Date: 20110902
  Receipt Date: 20110831
  Transmission Date: 20111222
  Serious: Yes (Other)
  Sender: FDA-Public Use
  Company Number: AU-PFIZER INC-2011203400

PATIENT
  Age: 30 Year
  Sex: Male

DRUGS (1)
  1. VARENICLINE TARTRATE [Suspect]
     Indication: SMOKING CESSATION THERAPY
     Dosage: 1 MG, 2X/DAY
     Route: 048
     Dates: start: 20110817, end: 20110831

REACTIONS (4)
  - FEAR [None]
  - DEPRESSED MOOD [None]
  - FEELING ABNORMAL [None]
  - SUICIDAL IDEATION [None]
